FAERS Safety Report 6296563-4 (Version None)
Quarter: 2009Q3

REPORT INFORMATION
  Report Type: 
  Country: None (occurrence: None)
  Receive Date: 20090804
  Receipt Date: 20090803
  Transmission Date: 20100115
  Serious: Yes (Hospitalization)
  Sender: FDA-Public Use
  Company Number: FR-PFIZER INC-2009210670

PATIENT
  Age: 75 Year

DRUGS (1)
  1. SALAZOPYRIN [Suspect]
     Dosage: UNK
     Dates: start: 20090101, end: 20090401

REACTIONS (2)
  - DRUG ERUPTION [None]
  - TOXIC EPIDERMAL NECROLYSIS [None]
